FAERS Safety Report 13656344 (Version 1)
Quarter: 2017Q2

REPORT INFORMATION
  Report Type: Spontaneous
  Country: DE (occurrence: DE)
  Receive Date: 20170615
  Receipt Date: 20170615
  Transmission Date: 20170830
  Serious: Yes (Other)
  Sender: FDA-Public Use
  Company Number: DE-TEVA-776947GER

PATIENT
  Age: 26 Year
  Sex: Male

DRUGS (1)
  1. COPAXONE [Suspect]
     Active Substance: GLATIRAMER ACETATE
     Dates: start: 20161017

REACTIONS (4)
  - Multiple sclerosis relapse [Unknown]
  - Visual impairment [Unknown]
  - Paraesthesia [Unknown]
  - Multiple sclerosis plaque [Unknown]

NARRATIVE: CASE EVENT DATE: 201705
